FAERS Safety Report 10543394 (Version 2)
Quarter: 2014Q4

REPORT INFORMATION
  Report Type: Spontaneous
  Country: US (occurrence: US)
  Receive Date: 20141027
  Receipt Date: 20141027
  Transmission Date: 20150529
  Serious: Yes (Life-Threatening)
  Sender: FDA-Public Use
  Company Number: US-ROCHE-GNE270125

PATIENT
  Sex: Female
  Weight: 108.96 kg

DRUGS (1)
  1. XOLAIR [Suspect]
     Active Substance: OMALIZUMAB
     Indication: ASTHMA
     Dosage: 150 MG, UNK
     Route: 058
     Dates: start: 20080530

REACTIONS (3)
  - Swollen tongue [Unknown]
  - Drug effect increased [Unknown]
  - Erythema [Unknown]
